FAERS Safety Report 11243894 (Version 1)
Quarter: 2015Q3

REPORT INFORMATION
  Report Type: Spontaneous
  Country: US (occurrence: None)
  Receive Date: 20150702
  Receipt Date: 20150702
  Transmission Date: 20151125
  Serious: No
  Sender: FDA-Public Use
  Company Number: None

PATIENT
  Sex: Male

DRUGS (1)
  1. BUPROPION XL [Suspect]
     Active Substance: BUPROPION
     Dates: start: 201203, end: 201209

REACTIONS (2)
  - Mood swings [None]
  - Product substitution issue [None]

NARRATIVE: CASE EVENT DATE: 2012
